FAERS Safety Report 26145093 (Version 1)
Quarter: 2025Q4

REPORT INFORMATION
  Report Type: Spontaneous
  Country: US (occurrence: US)
  Receive Date: 20251211
  Receipt Date: 20251211
  Transmission Date: 20260118
  Serious: No
  Sender: CELLTRION
  Company Number: US-CELLTRION INC.-2025US004678

PATIENT

DRUGS (2)
  1. RITUXIMAB [Suspect]
     Active Substance: RITUXIMAB
     Indication: Epstein-Barr virus associated lymphoproliferative disorder
     Dosage: 375 MG/M2, RITUXIMAB WEEKLY AT A DOSE OF 375 MG/M2 WITH THE APPROPRIATE PREMEDICATION FOR SIX WEEKS
  2. BRENTUXIMAB [Suspect]
     Active Substance: BRENTUXIMAB
     Indication: Epstein-Barr virus associated lymphoproliferative disorder
     Dosage: 1.2 MG/KG, EVERY 3 WEEKS FOR A TOTAL OF TWO DOSES

REACTIONS (3)
  - Therapeutic response shortened [Recovered/Resolved]
  - Intentional product use issue [Recovered/Resolved]
  - Therapy responder [Recovered/Resolved]
